FAERS Safety Report 23752935 (Version 1)
Quarter: 2024Q2

REPORT INFORMATION
  Report Type: Spontaneous
  Country: CN (occurrence: CN)
  Receive Date: 20240417
  Receipt Date: 20240417
  Transmission Date: 20240716
  Serious: Yes (Other)
  Sender: FDA-Public Use
  Company Number: CN-PFIZER INC-PV202400050860

PATIENT
  Age: 1 Year
  Sex: Female
  Weight: 12.3 kg

DRUGS (1)
  1. AZITHROMYCIN [Suspect]
     Active Substance: AZITHROMYCIN
     Indication: Symptomatic treatment
     Dosage: 0.1 G, 1X/DAY
     Route: 048
     Dates: start: 20240306, end: 20240307

REACTIONS (1)
  - Infantile vomiting [Recovering/Resolving]

NARRATIVE: CASE EVENT DATE: 20240306
